FAERS Safety Report 14704098 (Version 3)
Quarter: 2020Q1

REPORT INFORMATION
  Report Type: Spontaneous
  Country: US (occurrence: US)
  Receive Date: 20180402
  Receipt Date: 20200324
  Transmission Date: 20200409
  Serious: Yes (Other)
  Sender: FDA-Public Use
  Company Number: US-ASTRAZENECA-2018SE39090

PATIENT
  Age: 48 Year
  Sex: Male
  Weight: 124.8 kg

DRUGS (46)
  1. IRBESARTAN. [Concomitant]
     Active Substance: IRBESARTAN
  2. CYANOCOBALAMIN. [Concomitant]
     Active Substance: CYANOCOBALAMIN
  3. NEXIUM [Suspect]
     Active Substance: ESOMEPRAZOLE MAGNESIUM
     Indication: GASTROINTESTINAL DISORDER
     Route: 048
     Dates: start: 199601, end: 201608
  4. PRILOSEC [Suspect]
     Active Substance: OMEPRAZOLE MAGNESIUM
     Indication: GASTROOESOPHAGEAL REFLUX DISEASE
     Route: 048
     Dates: start: 199601, end: 201608
  5. METOPROLOL. [Concomitant]
     Active Substance: METOPROLOL
  6. FUROSEMIDE. [Concomitant]
     Active Substance: FUROSEMIDE
  7. INSULIN [Concomitant]
     Active Substance: INSULIN NOS
  8. ONDANSETRON [Concomitant]
     Active Substance: ONDANSETRON
  9. NEXIUM 24HR [Suspect]
     Active Substance: ESOMEPRAZOLE MAGNESIUM
     Indication: GASTROINTESTINAL DISORDER
     Route: 048
     Dates: start: 199601, end: 201608
  10. PRILOSEC OTC [Suspect]
     Active Substance: OMEPRAZOLE MAGNESIUM
     Indication: GASTROINTESTINAL DISORDER
     Route: 048
     Dates: start: 199601, end: 201608
  11. PREVACID [Suspect]
     Active Substance: LANSOPRAZOLE
     Indication: GASTROOESOPHAGEAL REFLUX DISEASE
     Route: 065
     Dates: start: 199601, end: 201608
  12. PREVACID 24 HR [Suspect]
     Active Substance: LANSOPRAZOLE
     Indication: GASTROOESOPHAGEAL REFLUX DISEASE
     Route: 065
     Dates: start: 199601, end: 201608
  13. PREVACID 24 HR [Suspect]
     Active Substance: LANSOPRAZOLE
     Indication: GASTROINTESTINAL DISORDER
     Route: 065
     Dates: start: 199601, end: 201608
  14. GABAPENTIN. [Concomitant]
     Active Substance: GABAPENTIN
  15. AMITRIPTYLINE [Concomitant]
     Active Substance: AMITRIPTYLINE
  16. PRILOSEC [Suspect]
     Active Substance: OMEPRAZOLE MAGNESIUM
     Indication: GASTROINTESTINAL DISORDER
     Route: 048
     Dates: start: 199601, end: 201608
  17. DEXILANT [Suspect]
     Active Substance: DEXLANSOPRAZOLE
     Indication: GASTROINTESTINAL DISORDER
     Route: 065
     Dates: start: 199601, end: 201608
  18. PREVACID [Suspect]
     Active Substance: LANSOPRAZOLE
     Indication: GASTROINTESTINAL DISORDER
     Route: 065
     Dates: start: 199601, end: 201608
  19. PROTONIX [Suspect]
     Active Substance: PANTOPRAZOLE SODIUM
     Indication: GASTROOESOPHAGEAL REFLUX DISEASE
     Route: 065
     Dates: start: 199601, end: 201608
  20. GLIPIZIDE. [Concomitant]
     Active Substance: GLIPIZIDE
  21. PROTONIX [Suspect]
     Active Substance: PANTOPRAZOLE SODIUM
     Indication: GASTROINTESTINAL DISORDER
     Route: 065
     Dates: start: 199601, end: 201608
  22. GEMFIBROZIL. [Concomitant]
     Active Substance: GEMFIBROZIL
  23. METFORMIN [Concomitant]
     Active Substance: METFORMIN HYDROCHLORIDE
  24. ASPIRIN. [Concomitant]
     Active Substance: ASPIRIN
  25. ALPRAZOLAM. [Concomitant]
     Active Substance: ALPRAZOLAM
  26. AZITHROMYCIN ANHYDROUS. [Concomitant]
     Active Substance: AZITHROMYCIN ANHYDROUS
  27. CHOLESTYRAMINE. [Concomitant]
     Active Substance: CHOLESTYRAMINE
  28. FLUCONAZOLE. [Concomitant]
     Active Substance: FLUCONAZOLE
  29. PRAVASTATIN. [Concomitant]
     Active Substance: PRAVASTATIN
  30. PREVACID 24 HR [Suspect]
     Active Substance: LANSOPRAZOLE
     Indication: GASTROOESOPHAGEAL REFLUX DISEASE
     Route: 065
     Dates: start: 199601, end: 201608
  31. PROTONIX [Suspect]
     Active Substance: PANTOPRAZOLE SODIUM
     Indication: GASTROOESOPHAGEAL REFLUX DISEASE
     Route: 065
     Dates: start: 199601, end: 201608
  32. RANITIDINE. [Concomitant]
     Active Substance: RANITIDINE
  33. METFORMIN [Concomitant]
     Active Substance: METFORMIN HYDROCHLORIDE
  34. PRILOSEC [Suspect]
     Active Substance: OMEPRAZOLE MAGNESIUM
     Indication: GASTROOESOPHAGEAL REFLUX DISEASE
     Route: 048
     Dates: start: 199601, end: 201608
  35. HYDROCHLOROTHIAZIDE. [Concomitant]
     Active Substance: HYDROCHLOROTHIAZIDE
  36. LISINOPRIL. [Concomitant]
     Active Substance: LISINOPRIL
  37. CIPROFLOXACIN. [Concomitant]
     Active Substance: CIPROFLOXACIN
  38. LANTUS [Concomitant]
     Active Substance: INSULIN GLARGINE
  39. DICLOFENAC [Concomitant]
     Active Substance: DICLOFENAC
  40. HYDROCODONE [Concomitant]
     Active Substance: HYDROCODONE
  41. FLUNISOLIDE. [Concomitant]
     Active Substance: FLUNISOLIDE
  42. AMLODIPINE [Concomitant]
     Active Substance: AMLODIPINE BESYLATE
  43. CEPHALEXIN. [Concomitant]
     Active Substance: CEPHALEXIN
  44. CLONAZEPAM. [Concomitant]
     Active Substance: CLONAZEPAM
  45. HYDROCODONE-APAP [Concomitant]
     Active Substance: ACETAMINOPHEN\HYDROCODONE
  46. METOPROLOL TARTRATE. [Concomitant]
     Active Substance: METOPROLOL TARTRATE

REACTIONS (6)
  - Acute kidney injury [Not Recovered/Not Resolved]
  - Chronic kidney disease [Not Recovered/Not Resolved]
  - Dyspepsia [Unknown]
  - Renal injury [Unknown]
  - End stage renal disease [Unknown]
  - Tubulointerstitial nephritis [Unknown]

NARRATIVE: CASE EVENT DATE: 2006
